FAERS Safety Report 8701866 (Version 2)
Quarter: 2012Q4

REPORT INFORMATION
  Report Type: Spontaneous
  Country: DE (occurrence: None)
  Receive Date: 20120718
  Receipt Date: 20120905
  Transmission Date: 20130627
  Serious: Yes (Other)
  Sender: FDA-Public Use
  Company Number: ACO_31071_2012

PATIENT
  Age: 48 Year
  Sex: Female

DRUGS (6)
  1. FAMPYRA (DALFAMPRIDINE) [Suspect]
     Indication: MUSCLE SPASTICITY
     Route: 048
     Dates: start: 20120331, end: 20120331
  2. VALPROATE SODIUM [Concomitant]
  3. GABAPENTIN [Concomitant]
  4. L-THYROXINE [Concomitant]
  5. METOPROLOL (METOPROLOL TARTRATE) [Concomitant]
  6. HCT (HYDROCHLOROTHIAZIDE) [Concomitant]

REACTIONS (1)
  - Grand mal convulsion [None]
